FAERS Safety Report 4397325-5 (Version None)
Quarter: 2004Q2

REPORT INFORMATION
  Report Type: 
  Country: None (occurrence: None)
  Receive Date: 20040621
  Receipt Date: 20040223
  Transmission Date: 20050107
  Serious: Yes (Death)
  Sender: FDA-Public Use
  Company Number: USA-2004-0013363

PATIENT
  Age: 62 Year
  Sex: Female

DRUGS (4)
  1. OXYCONTIN [Suspect]
  2. FLEXERIL [Concomitant]
  3. FOSAMAX [Concomitant]
  4. PRILOSEC [Concomitant]

REACTIONS (1)
  - INTENTIONAL OVERDOSE [None]
